FAERS Safety Report 4303330-7 (Version None)
Quarter: 2004Q1

REPORT INFORMATION
  Report Type: 
  Country: None (occurrence: None)
  Receive Date: 20040223
  Receipt Date: 20040212
  Transmission Date: 20041129
  Serious: Yes (Death, Life-Threatening)
  Sender: FDA-Public Use
  Company Number: GB-JNJFOC-20040203916

PATIENT
  Age: 42 Year
  Sex: Female

DRUGS (10)
  1. TRAMADOL HCL [Suspect]
     Indication: MUSCULOSKELETAL PAIN
     Dosage: 200 MG, 2 IN 1 DAY, ORAL
     Route: 048
     Dates: start: 20030512
  2. FLUOXETINE [Concomitant]
  3. IBUPROFEN [Concomitant]
  4. AMOXICILLIN [Concomitant]
  5. CO-CODAMOL (PANADEINE CO) [Concomitant]
  6. PARACETAMOL (PARACETAMOL) [Concomitant]
  7. NUBAIN [Concomitant]
  8. LACTULOSE [Concomitant]
  9. FYBOGEL (ISPAGHULA) [Concomitant]
  10. POWERGEL (KETOPROFEN) [Concomitant]

REACTIONS (11)
  - CIRCULATORY COLLAPSE [None]
  - CONVULSION [None]
  - DRUG INTERACTION [None]
  - HEPATIC CONGESTION [None]
  - OVERDOSE [None]
  - PNEUMONIA ASPIRATION [None]
  - PULMONARY CONGESTION [None]
  - PULMONARY OEDEMA [None]
  - RENAL INFARCT [None]
  - SPLENOMEGALY [None]
  - VOMITING [None]
